FAERS Safety Report 13455757 (Version 2)
Quarter: 2017Q2

REPORT INFORMATION
  Report Type: Spontaneous
  Country: ZA (occurrence: ZA)
  Receive Date: 20170419
  Receipt Date: 20170427
  Transmission Date: 20170830
  Serious: Yes (Hospitalization)
  Sender: FDA-Public Use
  Company Number: ZA-009507513-1704ZAF005079

PATIENT

DRUGS (2)
  1. ESMERON [Suspect]
     Active Substance: ROCURONIUM BROMIDE
  2. BRIDION [Suspect]
     Active Substance: SUGAMMADEX
     Indication: NEUROMUSCULAR BLOCKADE REVERSAL
     Dosage: UNK

REACTIONS (5)
  - Discomfort [Recovered/Resolved]
  - Chest pain [Recovered/Resolved]
  - Feeling abnormal [Recovered/Resolved]
  - Pain [Recovered/Resolved]
  - Hyperhidrosis [Recovered/Resolved]
